FAERS Safety Report 8401086-X (Version None)
Quarter: 2012Q2

REPORT INFORMATION
  Report Type: 
  Country: None (occurrence: None)
  Receive Date: 20120601
  Receipt Date: 20120531
  Transmission Date: 20120825
  Serious: No
  Sender: FDA-Public Use
  Company Number: US-PFIZER INC-2012131615

PATIENT
  Sex: Female
  Weight: 83.447 kg

DRUGS (8)
  1. METFORMIN [Concomitant]
     Dosage: UNK
  2. CRESTOR [Concomitant]
     Dosage: UNK
  3. CHANTIX [Suspect]
     Indication: SMOKING CESSATION THERAPY
     Dosage: 0.5 MG, 1X/DAY
     Route: 048
     Dates: start: 20120515, end: 20120501
  4. TRAZODONE [Concomitant]
     Dosage: UNK
  5. KLONOPIN [Concomitant]
     Dosage: UNK
  6. CHANTIX [Suspect]
     Dosage: 1 MG, 2X/DAY
     Route: 048
     Dates: start: 20120501, end: 20120528
  7. LAMICTAL [Concomitant]
     Dosage: UNK
  8. LEXAPRO [Concomitant]
     Dosage: UNK

REACTIONS (1)
  - STRESS [None]
